FAERS Safety Report 7584941-2 (Version None)
Quarter: 2011Q2

REPORT INFORMATION
  Report Type: 
  Country: None (occurrence: None)
  Receive Date: 20110630
  Receipt Date: 20110627
  Transmission Date: 20111010
  Serious: Yes (Other)
  Sender: FDA-Public Use
  Company Number: BR-ABBOTT-11P-020-0834894-00

PATIENT
  Sex: Female
  Weight: 68 kg

DRUGS (2)
  1. AZATHIOPRINE [Concomitant]
     Indication: IMMUNOSUPPRESSANT DRUG THERAPY
     Route: 048
     Dates: start: 19880901
  2. SYNTHROID [Suspect]
     Indication: HYPOTHYROIDISM
     Route: 048
     Dates: end: 20110626

REACTIONS (6)
  - GALLBLADDER OPERATION [None]
  - BONE MARROW DISORDER [None]
  - APHASIA [None]
  - WRONG DRUG ADMINISTERED [None]
  - BLINDNESS UNILATERAL [None]
  - HYPOKINESIA [None]
